FAERS Safety Report 8571494-5 (Version None)
Quarter: 2012Q3

REPORT INFORMATION
  Report Type: 
  Country: None (occurrence: None)
  Receive Date: 20120806
  Receipt Date: 20120727
  Transmission Date: 20120928
  Serious: Yes (Other)
  Sender: FDA-Public Use
  Company Number: CA-JNJFOC-20120714591

PATIENT
  Sex: Female
  Weight: 81 kg

DRUGS (4)
  1. VITAMIN D [Concomitant]
     Route: 065
  2. ACTONEL [Concomitant]
     Route: 065
  3. CALCIUM CARBONATE [Concomitant]
     Route: 065
  4. REMICADE [Suspect]
     Indication: CROHN'S DISEASE
     Route: 042
     Dates: start: 20110909

REACTIONS (3)
  - SINUSITIS [None]
  - CROHN'S DISEASE [None]
  - NEPHROLITHIASIS [None]
